FAERS Safety Report 10379925 (Version 2)
Quarter: 2014Q4

REPORT INFORMATION
  Report Type: Spontaneous
  Country: US (occurrence: US)
  Receive Date: 20140813
  Receipt Date: 20141110
  Transmission Date: 20150528
  Serious: Yes (Hospitalization)
  Sender: FDA-Public Use
  Company Number: US-GILEAD-2014-0111662

PATIENT
  Age: 48 Year
  Sex: Female

DRUGS (17)
  1. LETAIRIS [Suspect]
     Active Substance: AMBRISENTAN
     Indication: PORTOPULMONARY HYPERTENSION
  2. FUROSEMIDE. [Concomitant]
     Active Substance: FUROSEMIDE
  3. HYDROCODONE [Concomitant]
     Active Substance: HYDROCODONE
  4. COREG [Concomitant]
     Active Substance: CARVEDILOL
  5. NEURONTIN [Concomitant]
     Active Substance: GABAPENTIN
  6. ONDANSETRON [Concomitant]
     Active Substance: ONDANSETRON
  7. DEMADEX [Concomitant]
     Active Substance: TORSEMIDE
  8. VALIUM [Concomitant]
     Active Substance: DIAZEPAM
  9. LETAIRIS [Suspect]
     Active Substance: AMBRISENTAN
     Indication: PULMONARY ARTERIAL HYPERTENSION
     Dosage: 5 MG, QD
     Route: 065
     Dates: start: 20140717
  10. LANTUS [Concomitant]
     Active Substance: INSULIN GLARGINE
  11. LACTOSE [Concomitant]
     Active Substance: LACTOSE
  12. ISOSORBIDE [Concomitant]
     Active Substance: ISOSORBIDE
  13. SYNTHROID [Concomitant]
     Active Substance: LEVOTHYROXINE SODIUM
  14. PROTONIX [Concomitant]
     Active Substance: PANTOPRAZOLE SODIUM
  15. ALDACTONE [Concomitant]
     Active Substance: SPIRONOLACTONE
  16. PLAVIX [Concomitant]
     Active Substance: CLOPIDOGREL BISULFATE
  17. NOVOLOG [Concomitant]
     Active Substance: INSULIN ASPART

REACTIONS (1)
  - Fluid overload [Recovered/Resolved]

NARRATIVE: CASE EVENT DATE: 20140724
